FAERS Safety Report 7293934-4 (Version None)
Quarter: 2011Q1

REPORT INFORMATION
  Report Type: 
  Country: None (occurrence: None)
  Receive Date: 20110204
  Receipt Date: 20110118
  Transmission Date: 20110831
  Serious: Yes (Hospitalization)
  Sender: FDA-Public Use
  Company Number: UTC-004467

PATIENT
  Age: 13 Year
  Sex: Female
  Weight: 47.7 kg

DRUGS (3)
  1. TRACLEER `(BOSENTAN) [Concomitant]
  2. REMODULIN [Suspect]
     Indication: PULMONARY ARTERIAL HYPERTENSION
     Dosage: 63.36 UG/KG (0.044 UG/KG, 1 IN 1 MIN), INTRAVENOUS
     Route: 042
     Dates: start: 20100629
  3. ADCIRCA [Concomitant]

REACTIONS (2)
  - NAUSEA [None]
  - PAIN [None]
